FAERS Safety Report 5959854-X (Version None)
Quarter: 2008Q4

REPORT INFORMATION
  Report Type: 
  Country: None (occurrence: None)
  Receive Date: 20081120
  Receipt Date: 20081114
  Transmission Date: 20090506
  Serious: Yes (Other)
  Sender: FDA-Public Use
  Company Number: B0547006A

PATIENT
  Age: 45 Year
  Sex: Female

DRUGS (2)
  1. AUGMENTIN '125' [Suspect]
     Indication: DRUG USE FOR UNKNOWN INDICATION
     Dates: start: 20070301
  2. UNKNOWN DRUG [Concomitant]
     Dosage: 500MG PER DAY
     Route: 048

REACTIONS (1)
  - VAGINAL HAEMORRHAGE [None]
